FAERS Safety Report 17681962 (Version 2)
Quarter: 2020Q4

REPORT INFORMATION
  Report Type: Report from Study
  Country: None (occurrence: DE)
  Receive Date: 20200418
  Receipt Date: 20201029
  Transmission Date: 20210113
  Serious: Yes (Hospitalization)
  Sender: FDA-Public Use
  Company Number: DE-ABBVIE-19K-062-2880816-00

PATIENT
  Age: 54 Year
  Sex: Female

DRUGS (6)
  1. HUMIRA [Suspect]
     Active Substance: ADALIMUMAB
     Route: 058
  2. CANNABIS [Suspect]
     Active Substance: CANNABIS SATIVA SUBSP. INDICA TOP
     Indication: PRODUCT USED FOR UNKNOWN INDICATION
     Route: 065
     Dates: start: 202009
  3. SYMBICORT [Concomitant]
     Active Substance: BUDESONIDE\FORMOTEROL FUMARATE DIHYDRATE
     Indication: ASTHMA
     Route: 055
     Dates: start: 1980
  4. RESOLOR [Suspect]
     Active Substance: PRUCALOPRIDE SUCCINATE
     Indication: DYSPEPSIA
     Route: 065
  5. HUMIRA [Suspect]
     Active Substance: ADALIMUMAB
     Indication: CROHN^S DISEASE
     Route: 058
     Dates: start: 20110609
  6. RESOLOR [Suspect]
     Active Substance: PRUCALOPRIDE SUCCINATE
     Indication: VOMITING

REACTIONS (22)
  - Vomiting [Recovered/Resolved]
  - Animal bite [Recovered/Resolved]
  - Scoliosis [Unknown]
  - Joint swelling [Unknown]
  - Bacterial infection [Unknown]
  - Vomiting [Recovered/Resolved]
  - Electrolyte imbalance [Unknown]
  - Hypoaesthesia [Recovered/Resolved]
  - Gastric volvulus [Not Recovered/Not Resolved]
  - Bursitis infective [Recovered/Resolved]
  - Bursitis [Unknown]
  - Dizziness [Recovered/Resolved]
  - Impaired gastric emptying [Recovered/Resolved]
  - Vomiting [Recovered/Resolved]
  - Stress [Unknown]
  - Vomiting [Recovered/Resolved]
  - Joint swelling [Recovered/Resolved]
  - Dyspepsia [Unknown]
  - Tachycardia [Recovered/Resolved]
  - Headache [Recovered/Resolved]
  - Vomiting [Not Recovered/Not Resolved]
  - Bronchitis [Unknown]

NARRATIVE: CASE EVENT DATE: 2018
